FAERS Safety Report 12847020 (Version 2)
Quarter: 2016Q4

REPORT INFORMATION
  Report Type: Report from Study
  Country: TR (occurrence: TR)
  Receive Date: 20161014
  Receipt Date: 20161020
  Transmission Date: 20170207
  Serious: Yes (Death, Hospitalization, Other)
  Sender: FDA-Public Use
  Company Number: PHHY2016TR141134

PATIENT
  Age: 69 Year
  Sex: Male

DRUGS (2)
  1. TRAMETINIB [Suspect]
     Active Substance: TRAMETINIB
     Indication: METASTATIC MALIGNANT MELANOMA
     Dosage: UNK
     Route: 048
     Dates: start: 20160405, end: 20160817
  2. DABRAFENIB [Suspect]
     Active Substance: DABRAFENIB
     Indication: METASTATIC MALIGNANT MELANOMA
     Dosage: UNK
     Route: 048
     Dates: start: 20160405, end: 20160907

REACTIONS (6)
  - Pyrexia [Unknown]
  - Gamma-glutamyltransferase increased [Unknown]
  - Cholangitis acute [Unknown]
  - Metastases to central nervous system [Fatal]
  - C-reactive protein increased [Unknown]
  - Abdominal pain [Unknown]

NARRATIVE: CASE EVENT DATE: 20160817
